FAERS Safety Report 14707289 (Version 2)
Quarter: 2018Q2

REPORT INFORMATION
  Report Type: Spontaneous
  Country: US (occurrence: US)
  Receive Date: 20180403
  Receipt Date: 20180508
  Transmission Date: 20180711
  Serious: Yes (Hospitalization)
  Sender: FDA-Public Use
  Company Number: US-TAIHO ONCOLOGY INC-EU-2018-00426

PATIENT
  Sex: Female
  Weight: 73.14 kg

DRUGS (1)
  1. LONSURF [Suspect]
     Active Substance: TIPIRACIL HYDROCHLORIDE\TRIFLURIDINE
     Indication: COLON CANCER
     Dosage: CYCLE 2 STARTED ON 28FEB2018
     Route: 048
     Dates: start: 20180101, end: 20180311

REACTIONS (3)
  - Infection [Unknown]
  - Pulmonary oedema [Unknown]
  - Disease progression [Unknown]

NARRATIVE: CASE EVENT DATE: 2018
